FAERS Safety Report 15046217 (Version 7)
Quarter: 2021Q2

REPORT INFORMATION
  Report Type: Spontaneous
  Country: DE (occurrence: DE)
  Receive Date: 20180621
  Receipt Date: 20210630
  Transmission Date: 20210716
  Serious: Yes (Other)
  Sender: FDA-Public Use
  Company Number: PHHY2017DE057802

PATIENT
  Age: 65 Year
  Sex: Female

DRUGS (19)
  1. ONDANSETRON [Suspect]
     Active Substance: ONDANSETRON
     Indication: PROPHYLAXIS OF NAUSEA AND VOMITING
     Dosage: 8 MG, QD
     Route: 065
  2. LEVETIRACETAM. [Suspect]
     Active Substance: LEVETIRACETAM
     Indication: SEIZURE
     Dosage: 1000 MG, QD STARTING DOSE
     Route: 065
  3. LEVETIRACETAM. [Suspect]
     Active Substance: LEVETIRACETAM
     Indication: EPILEPSY
     Dosage: UNK, QD
     Route: 065
  4. CLOBAZAM. [Suspect]
     Active Substance: CLOBAZAM
     Indication: PARTIAL SEIZURES
  5. LEVETIRACETAM. [Suspect]
     Active Substance: LEVETIRACETAM
     Indication: PARTIAL SEIZURES
     Dosage: 2750 MG, QD STARTING DOSE
     Route: 065
  6. ARTESUNATE [Interacting]
     Active Substance: ARTESUNATE
     Indication: GLIOBLASTOMA MULTIFORME
  7. VALPROIC ACID. [Suspect]
     Active Substance: VALPROIC ACID
     Indication: GLIOBLASTOMA MULTIFORME
     Dosage: UNK
     Route: 065
  8. TEMOZOLOMIDE. [Interacting]
     Active Substance: TEMOZOLOMIDE
     Dosage: 200 MG/M2, QD FOR SUBSEQUENT CYCLES
     Route: 065
  9. LORAZEPAM. [Suspect]
     Active Substance: LORAZEPAM
     Indication: PARTIAL SEIZURES
  10. VALPROIC ACID. [Suspect]
     Active Substance: VALPROIC ACID
     Indication: EPILEPSY
  11. ARTESUNATE [Interacting]
     Active Substance: ARTESUNATE
     Indication: MALARIA
  12. CLOBAZAM. [Suspect]
     Active Substance: CLOBAZAM
     Indication: SEIZURE
     Dosage: 5 MG, QD P.R.N
     Route: 048
  13. TEMOZOLOMIDE. [Interacting]
     Active Substance: TEMOZOLOMIDE
     Indication: GLIOBLASTOMA MULTIFORME
     Dosage: 50 MG/M2, QD
     Route: 048
     Dates: start: 2014
  14. TEMOZOLOMIDE. [Interacting]
     Active Substance: TEMOZOLOMIDE
     Dosage: 150 MG/M2, QD CYCLE FOR THE FIRST TWO CYCLES
     Route: 048
  15. ARTESUNATE [Interacting]
     Active Substance: ARTESUNATE
     Indication: MALARIA PROPHYLAXIS
     Dosage: 200 MG, QD
     Route: 048
     Dates: start: 20150920, end: 20151020
  16. CLOBAZAM. [Suspect]
     Active Substance: CLOBAZAM
     Indication: EPILEPSY
  17. LORAZEPAM. [Suspect]
     Active Substance: LORAZEPAM
     Indication: EPILEPSY
  18. LORAZEPAM. [Suspect]
     Active Substance: LORAZEPAM
     Indication: SEIZURE
     Dosage: 1 MG, QD, (1 MG,PRN)
     Route: 048
  19. DIVALPROEX SODIUM. [Interacting]
     Active Substance: DIVALPROEX SODIUM
     Indication: PRODUCT USED FOR UNKNOWN INDICATION
     Dosage: UNK
     Route: 065

REACTIONS (24)
  - Asthenia [Recovered/Resolved]
  - Weight decreased [Recovered/Resolved]
  - Aspartate aminotransferase increased [Recovered/Resolved]
  - Intentional product misuse [Unknown]
  - Chest pain [Recovering/Resolving]
  - Blood lactate dehydrogenase increased [Recovered/Resolved]
  - Monocyte count decreased [Recovered/Resolved]
  - Depressed mood [Recovered/Resolved]
  - Hepatic enzyme increased [Recovered/Resolved]
  - Alanine aminotransferase increased [Recovered/Resolved]
  - Glioblastoma multiforme [Recovered/Resolved]
  - Condition aggravated [Recovered/Resolved]
  - Off label use [Unknown]
  - Drug-induced liver injury [Recovered/Resolved]
  - White blood cell count decreased [Recovered/Resolved]
  - Overdose [Unknown]
  - Fatigue [Recovered/Resolved]
  - Dyspepsia [Recovered/Resolved]
  - Leukopenia [Unknown]
  - Hepatotoxicity [Recovered/Resolved]
  - Nausea [Recovered/Resolved]
  - Drug interaction [Recovered/Resolved]
  - Gamma-glutamyltransferase increased [Recovered/Resolved]
  - Product use in unapproved indication [Unknown]

NARRATIVE: CASE EVENT DATE: 2015
